FAERS Safety Report 14475185 (Version 12)
Quarter: 2018Q3

REPORT INFORMATION
  Report Type: Spontaneous
  Country: JP (occurrence: JP)
  Receive Date: 20180201
  Receipt Date: 20180703
  Transmission Date: 20181010
  Serious: Yes (Life-Threatening, Hospitalization, Other)
  Sender: FDA-Public Use
  Company Number: JP-PFIZER INC-2018039742

PATIENT
  Age: 17 Year
  Sex: Male
  Weight: 60 kg

DRUGS (19)
  1. PITRESSIN [Suspect]
     Active Substance: VASOPRESSIN
     Indication: DIABETES INSIPIDUS
     Dosage: UNK (APPROPRIATELY ADJUSTED DOSE)
     Dates: start: 20160902
  2. MINIRINMELT [Concomitant]
     Active Substance: DESMOPRESSIN ACETATE
     Dosage: UNK
     Dates: start: 20160902
  3. CEFTRIAXONE SODIUM. [Suspect]
     Active Substance: CEFTRIAXONE SODIUM
     Indication: INFECTION PROPHYLAXIS
     Dosage: 2 G, 2X/DAY
     Route: 041
     Dates: start: 20160908, end: 20160913
  4. TEGRETOL [Suspect]
     Active Substance: CARBAMAZEPINE
     Indication: SEIZURE
     Dosage: 200 MG, 2X/DAY
     Route: 048
     Dates: start: 20160927, end: 20161014
  5. CEFAZOLIN SODIUM. [Concomitant]
     Active Substance: CEFAZOLIN SODIUM
     Dosage: UNK
     Dates: start: 20160922, end: 20160926
  6. SODIUM VALPROATE [Suspect]
     Active Substance: VALPROATE SODIUM
     Dosage: 400 MG, 3X/DAY
     Route: 048
     Dates: start: 20160926, end: 20161009
  7. LINEZOLID. [Concomitant]
     Active Substance: LINEZOLID
     Dosage: UNK
     Dates: start: 20160908, end: 20160917
  8. FOSPHENYTOIN SODIUM. [Concomitant]
     Active Substance: FOSPHENYTOIN SODIUM
     Dosage: UNK
     Dates: start: 20160902, end: 20160907
  9. PREDNISOLONE. [Concomitant]
     Active Substance: PREDNISOLONE
     Dosage: UNK
     Dates: start: 20161014, end: 20170205
  10. CEFEPIME [Concomitant]
     Active Substance: CEFEPIME HYDROCHLORIDE
     Dosage: UNK
     Dates: start: 20161019, end: 20161024
  11. DESMOPRESSIN /00361902/ [Concomitant]
     Active Substance: DESMOPRESSIN ACETATE
     Dosage: UNK
     Dates: start: 20160902
  12. CRAVIT [Suspect]
     Active Substance: LEVOFLOXACIN
     Indication: INFECTION
     Dosage: 500 MG, DAILY
     Route: 048
     Dates: start: 20161005, end: 20161009
  13. SODIUM VALPROATE [Suspect]
     Active Substance: VALPROATE SODIUM
     Indication: SEIZURE
     Dosage: 200 MG, 3X/DAY
     Route: 048
     Dates: start: 20160922, end: 20160925
  14. GLYCERIN. [Concomitant]
     Active Substance: GLYCERIN
     Indication: INTRACRANIAL PRESSURE INCREASED
     Dosage: 200 UNK, UNK
     Route: 041
     Dates: start: 20160903, end: 20160905
  15. CEFTAZIDIME /00559702/ [Concomitant]
     Dosage: UNK
     Dates: start: 20160926, end: 20161003
  16. SULFAMETHOXAZOLE AND TRIMETHOPRIM [Concomitant]
     Active Substance: SULFAMETHOXAZOLE\TRIMETHOPRIM
     Dosage: UNK
     Dates: start: 20161004, end: 20161010
  17. MEROPENEM. [Suspect]
     Active Substance: MEROPENEM
     Indication: INFECTION
     Dosage: 2 G, 3X/DAY
     Route: 041
     Dates: start: 20161008, end: 20161019
  18. VANCOMYCIN HYDROCHLORIDE. [Suspect]
     Active Substance: VANCOMYCIN HYDROCHLORIDE
     Indication: DEVICE RELATED INFECTION
     Dosage: 1.5 G, 2X/DAY (3 GM (1.5 GM,2 IN 1 D))
     Route: 041
     Dates: start: 20161008, end: 20161019
  19. CEFOTAXIME SODIUM [Concomitant]
     Active Substance: CEFOTAXIME SODIUM
     Indication: INFECTION
     Dosage: 1 G, 4X/DAY
     Route: 041
     Dates: start: 20160902, end: 20160917

REACTIONS (1)
  - Histiocytosis haematophagic [Recovered/Resolved]

NARRATIVE: CASE EVENT DATE: 20161019
